FAERS Safety Report 18810778 (Version 3)
Quarter: 2021Q1

REPORT INFORMATION
  Report Type: Spontaneous
  Country: US (occurrence: US)
  Receive Date: 20210129
  Receipt Date: 20210218
  Transmission Date: 20210419
  Serious: Yes (Other)
  Sender: FDA-Public Use
  Company Number: US-THE MENTHOLATUM COMPANY-2106048

PATIENT
  Age: 45 Year
  Sex: Female
  Weight: 70.46 kg

DRUGS (1)
  1. EQUATE COOL AND HEAT [Suspect]
     Active Substance: MENTHOL\METHYL SALICYLATE
     Indication: ANALGESIC THERAPY
     Route: 061
     Dates: start: 20201228, end: 20201228

REACTIONS (5)
  - Application site irritation [Not Recovered/Not Resolved]
  - Application site dryness [Not Recovered/Not Resolved]
  - Application site vesicles [Not Recovered/Not Resolved]
  - Application site pruritus [Not Recovered/Not Resolved]
  - Chemical burn of skin [Recovering/Resolving]

NARRATIVE: CASE EVENT DATE: 20201228
